FAERS Safety Report 4278889-9 (Version None)
Quarter: 2004Q1

REPORT INFORMATION
  Report Type: 
  Country: None (occurrence: None)
  Receive Date: 20040122
  Receipt Date: 20040122
  Transmission Date: 20041129
  Serious: No
  Sender: FDA-Public Use
  Company Number: None

PATIENT
  Age: 42 Year
  Sex: Female
  Weight: 113.3993 kg

DRUGS (2)
  1. VANCOCIN HCL [Suspect]
     Indication: CLOSTRIDIAL INFECTION
     Dosage: 1 CAPSULE ORAL
     Route: 048
     Dates: start: 20031214, end: 20040314
  2. VANCOCIN HCL [Suspect]
     Indication: CLOSTRIDIUM COLITIS
     Dosage: 1 CAPSULE ORAL
     Route: 048
     Dates: start: 20031214, end: 20040314

REACTIONS (1)
  - MEDICATION ERROR [None]
